FAERS Safety Report 23741192 (Version 4)
Quarter: 2024Q2

REPORT INFORMATION
  Report Type: Spontaneous
  Country: US (occurrence: US)
  Receive Date: 20240415
  Receipt Date: 20240625
  Transmission Date: 20240716
  Serious: No
  Sender: FDA-Public Use
  Company Number: US-CTI BIOPHARMA-2024US04550

PATIENT
  Age: 65 Year
  Sex: Male

DRUGS (2)
  1. VONJO [Suspect]
     Active Substance: PACRITINIB
     Indication: Marrow hyperplasia
     Dosage: 200 MG, TWICE A DAY (BID)
     Route: 048
     Dates: start: 20240213
  2. VONJO [Suspect]
     Active Substance: PACRITINIB
     Indication: Myelofibrosis

REACTIONS (14)
  - Diarrhoea [Unknown]
  - Nausea [Unknown]
  - Nasopharyngitis [Recovered/Resolved]
  - Full blood count increased [Unknown]
  - Poor quality sleep [Unknown]
  - Off label use [Not Recovered/Not Resolved]
  - Lethargy [Unknown]
  - Product dose omission issue [Unknown]
  - Arthritis [Unknown]
  - White blood cell count increased [Unknown]
  - Apathy [Unknown]
  - Blood lactate dehydrogenase increased [Unknown]
  - Blood iron decreased [Unknown]
  - Fatigue [Unknown]

NARRATIVE: CASE EVENT DATE: 20240213
